FAERS Safety Report 13686310 (Version 1)
Quarter: 2017Q2

REPORT INFORMATION
  Report Type: Spontaneous
  Country: US (occurrence: US)
  Receive Date: 20170623
  Receipt Date: 20170623
  Transmission Date: 20170830
  Serious: No
  Sender: FDA-Public Use
  Company Number: US-ROCHE-1427286

PATIENT
  Sex: Male

DRUGS (5)
  1. FLEXERIL [Concomitant]
     Active Substance: CYCLOBENZAPRINE HYDROCHLORIDE
     Indication: TREMOR
  2. MESTINON [Concomitant]
     Active Substance: PYRIDOSTIGMINE BROMIDE
     Indication: MYASTHENIA GRAVIS
     Dosage: 2 TWICE A DAY BY MOUTH
     Route: 048
  3. SOMA [Concomitant]
     Active Substance: CARISOPRODOL
     Indication: TREMOR
  4. CELLCEPT [Suspect]
     Active Substance: MYCOPHENOLATE MOFETIL\MYCOPHENOLATE MOFETIL HYDROCHLORIDE
     Indication: MYASTHENIA GRAVIS
     Route: 048
     Dates: start: 2011
  5. PREDNISONE. [Concomitant]
     Active Substance: PREDNISONE
     Dosage: 30 IN THE MORNING, 20 IN THE EVENING
     Route: 048
     Dates: start: 2010

REACTIONS (20)
  - Hypopnoea [Unknown]
  - Muscular weakness [Unknown]
  - Vision blurred [Not Recovered/Not Resolved]
  - Hypertension [Unknown]
  - Carpal tunnel syndrome [Unknown]
  - Tremor [Unknown]
  - Weight increased [Unknown]
  - Increased appetite [Unknown]
  - Extraocular muscle paresis [Unknown]
  - Fluid retention [Unknown]
  - Blood cholesterol increased [Unknown]
  - Diplopia [Unknown]
  - Dysarthria [Unknown]
  - Acne [Unknown]
  - Drug ineffective [Unknown]
  - Tooth fracture [Not Recovered/Not Resolved]
  - Muscle spasms [Unknown]
  - Sleep apnoea syndrome [Unknown]
  - Rash [Unknown]
  - Type 2 diabetes mellitus [Unknown]
